FAERS Safety Report 5839841-2 (Version None)
Quarter: 2008Q3

REPORT INFORMATION
  Report Type: 
  Country: None (occurrence: None)
  Receive Date: 20080811
  Receipt Date: 20080731
  Transmission Date: 20090109
  Serious: Yes (Hospitalization)
  Sender: FDA-Public Use
  Company Number: US-JNJFOC-20080800152

PATIENT
  Age: 14 Year
  Sex: Female
  Weight: 38.3 kg

DRUGS (7)
  1. REMICADE [Suspect]
     Indication: JUVENILE ARTHRITIS
  2. PLAQUENIL [Concomitant]
  3. CYPROHEPTADINE HCL [Concomitant]
     Dosage: 2.5-5 MG AT BEDTIME
  4. MELATONIN [Concomitant]
  5. MILK THISTLE [Concomitant]
  6. GENERAL NUTRIENTS [Concomitant]
  7. FISH OIL [Concomitant]

REACTIONS (1)
  - HERPES ZOSTER [None]
